FAERS Safety Report 25940349 (Version 3)
Quarter: 2025Q4

REPORT INFORMATION
  Report Type: Spontaneous
  Country: US (occurrence: US)
  Receive Date: 20251020
  Receipt Date: 20251119
  Transmission Date: 20260117
  Serious: No
  Sender: PFIZER
  Company Number: US-PFIZER INC-202500196397

PATIENT
  Age: 12 Year
  Sex: Male

DRUGS (2)
  1. NGENLA [Suspect]
     Active Substance: SOMATROGON-GHLA
     Dosage: 25 MG, WEEKLY
  2. NGENLA [Suspect]
     Active Substance: SOMATROGON-GHLA
     Dosage: 25 MG, WEEKLY

REACTIONS (3)
  - Product dose omission issue [Unknown]
  - Anxiety [Unknown]
  - Injection site pain [Unknown]
